FAERS Safety Report 16757944 (Version 1)
Quarter: 2019Q3

REPORT INFORMATION
  Report Type: Report from Study
  Country: BR (occurrence: BR)
  Receive Date: 20190830
  Receipt Date: 20190830
  Transmission Date: 20191005
  Serious: Yes (Hospitalization, Other)
  Sender: FDA-Public Use
  Company Number: BR-SA-MPS1-1000788

PATIENT
  Age: 4 Year
  Sex: Male
  Weight: 13.6 kg

DRUGS (6)
  1. LARONIDASE [Suspect]
     Active Substance: LARONIDASE
     Indication: MUCOPOLYSACCHARIDOSIS
     Dosage: UNK, QW
     Route: 041
     Dates: start: 20090101
  2. LARONIDASE [Suspect]
     Active Substance: LARONIDASE
     Dosage: 2.9 DF, UNK
     Route: 041
     Dates: start: 2016
  3. LARONIDASE [Suspect]
     Active Substance: LARONIDASE
     Dosage: 2.9 DF, UNK
     Route: 041
     Dates: start: 20120910
  4. PROMETHAZINE [Concomitant]
     Active Substance: PROMETHAZINE HYDROCHLORIDE
     Indication: PREMEDICATION
     Dosage: 05 MG/KG,UNK
     Route: 030
     Dates: start: 20120910
  5. DIPYRONE [Concomitant]
     Active Substance: DIPYRONE
     Indication: PREMEDICATION
     Dosage: 15 MG/KG,UNK
     Route: 048
  6. PREDNISOLONE. [Concomitant]
     Active Substance: PREDNISOLONE
     Indication: PREMEDICATION
     Dosage: 2 MG/KG,UNK
     Route: 048

REACTIONS (10)
  - Urticaria papular [Recovered/Resolved]
  - Cough [Recovered/Resolved]
  - Throat tightness [Recovered/Resolved]
  - Dermatitis [Recovered/Resolved]
  - Psychomotor hyperactivity [Recovered/Resolved]
  - Anaphylactic reaction [Recovered/Resolved]
  - Blood immunoglobulin G increased [Unknown]
  - Headache [Recovered/Resolved]
  - Lip oedema [Recovered/Resolved]
  - Oxygen saturation decreased [Recovered/Resolved]

NARRATIVE: CASE EVENT DATE: 20120910
